FAERS Safety Report 18212047 (Version 1)
Quarter: 2020Q3

REPORT INFORMATION
  Report Type: Spontaneous
  Country: US (occurrence: US)
  Receive Date: 20200831
  Receipt Date: 20200831
  Transmission Date: 20201103
  Serious: No
  Sender: FDA-Public Use
  Company Number: US-ASTRAZENECA-2020SF06083

PATIENT
  Sex: Male
  Weight: 99.8 kg

DRUGS (9)
  1. BENAZEPRIL [Concomitant]
     Active Substance: BENAZEPRIL HYDROCHLORIDE
  2. SIMVASTATIN. [Concomitant]
     Active Substance: SIMVASTATIN
  3. BYDUREON [Suspect]
     Active Substance: EXENATIDE
     Indication: TYPE 2 DIABETES MELLITUS
     Route: 058
     Dates: start: 2017
  4. JANUMET [Concomitant]
     Active Substance: METFORMIN HYDROCHLORIDE\SITAGLIPTIN PHOSPHATE
  5. METOPROLOL. [Suspect]
     Active Substance: METOPROLOL
     Route: 065
  6. GLYBURIDE. [Concomitant]
     Active Substance: GLYBURIDE
  7. ISOSORBIDE. [Concomitant]
     Active Substance: ISOSORBIDE
  8. AMLODIPINE [Concomitant]
     Active Substance: AMLODIPINE BESYLATE
  9. FENOFIBRATE. [Concomitant]
     Active Substance: FENOFIBRATE

REACTIONS (4)
  - Drug dose omission by device [Unknown]
  - Intentional device misuse [Unknown]
  - Injection site nodule [Unknown]
  - Device issue [Unknown]
